FAERS Safety Report 13360603 (Version 3)
Quarter: 2018Q1

REPORT INFORMATION
  Report Type: Spontaneous
  Country: IT (occurrence: IT)
  Receive Date: 20170322
  Receipt Date: 20180214
  Transmission Date: 20180508
  Serious: Yes (Hospitalization)
  Sender: FDA-Public Use
  Company Number: IT-BAUSCH-BL-2017-007297

PATIENT
  Age: 45 Year
  Sex: Male

DRUGS (3)
  1. DILTIAZEM. [Suspect]
     Active Substance: DILTIAZEM
     Indication: DRUG ABUSE
     Dosage: 15-20 TABLETS 120 MG; 17 DOSAGE FORMS
     Route: 048
  2. LANSOPRAZOLE. [Suspect]
     Active Substance: LANSOPRAZOLE
     Indication: DRUG ABUSE
     Dosage: TOTAL 4 TABLETS,  ORALLY DISINTEGRATING
     Route: 048
  3. ALCOHOL. [Concomitant]
     Active Substance: ALCOHOL
     Indication: PRODUCT USED FOR UNKNOWN INDICATION

REACTIONS (3)
  - Sopor [Unknown]
  - Nausea [Unknown]
  - Drug abuse [Unknown]

NARRATIVE: CASE EVENT DATE: 20160906
